FAERS Safety Report 25684678 (Version 1)
Quarter: 2025Q3

REPORT INFORMATION
  Report Type: Spontaneous
  Country: JP (occurrence: JP)
  Receive Date: 20250815
  Receipt Date: 20250815
  Transmission Date: 20251021
  Serious: Yes (Life-Threatening, Hospitalization)
  Sender: ACCORD
  Company Number: JP-Accord-499487

PATIENT
  Age: 70 Year
  Sex: Male
  Weight: 45.8 kg

DRUGS (12)
  1. CAPECITABINE [Suspect]
     Active Substance: CAPECITABINE
     Indication: Colon cancer metastatic
     Dosage: BEGINNING FROM THE EVENING OF DAY 1 UNTIL THE MORNING OF DAY 15
     Route: 048
  2. OXALIPLATIN [Suspect]
     Active Substance: OXALIPLATIN
     Indication: Colon cancer metastatic
     Dosage: ADMINISTERED ON DAY 1; REGIMEN WAS REPEATED EVERY 3 WEEKS
  3. BEVACIZUMAB [Suspect]
     Active Substance: BEVACIZUMAB
     Indication: Colon cancer metastatic
     Dosage: ADMINISTERED ON DAY 1; REGIMEN WAS REPEATED EVERY 3 WEEKS
  4. APREPITANT [Concomitant]
     Active Substance: APREPITANT
     Dosage: ADMINISTERED UP TO 1 H BEFORE OXALIPLATIN ADMINISTRATION ON DAY 1
     Route: 048
  5. CLOPIDOGREL [Concomitant]
     Active Substance: CLOPIDOGREL BISULFATE
  6. DEXAMETHASONE [Concomitant]
     Active Substance: DEXAMETHASONE
     Dosage: ADMINISTERED 30 MIN BEFORE OXALIPLATIN ON DAY 1
  7. FOLIC ACID [Concomitant]
     Active Substance: FOLIC ACID
  8. IFENPRODIL TARTRATE [Concomitant]
     Active Substance: IFENPRODIL TARTRATE
  9. PALONOSETRON HYDROCHLORIDE [Concomitant]
     Active Substance: PALONOSETRON HYDROCHLORIDE
     Indication: Prophylaxis of nausea and vomiting
  10. TEPRENONE [Concomitant]
     Active Substance: TEPRENONE
  11. VALSARTAN [Concomitant]
     Active Substance: VALSARTAN
  12. APREPITANT [Concomitant]
     Active Substance: APREPITANT
     Dosage: ON DAYS 2 AND 3, ADMINISTERED AFTER BREAKFAST
     Route: 048

REACTIONS (4)
  - Inappropriate antidiuretic hormone secretion [Recovered/Resolved]
  - Hiccups [Unknown]
  - Nausea [Unknown]
  - Decreased appetite [Unknown]
